FAERS Safety Report 20388285 (Version 1)
Quarter: 2022Q1

REPORT INFORMATION
  Report Type: Spontaneous
  Country: US (occurrence: US)
  Receive Date: 20220128
  Receipt Date: 20220128
  Transmission Date: 20220423
  Serious: No
  Sender: FDA-Public Use
  Company Number: US-ALLERGAN-2117810US

PATIENT
  Sex: Male

DRUGS (3)
  1. BOTOX [Suspect]
     Active Substance: ONABOTULINUMTOXINA
     Indication: Nerve compression
     Dosage: 280 UNITS, SINGLE
     Dates: start: 20210506, end: 20210506
  2. BOTOX [Suspect]
     Active Substance: ONABOTULINUMTOXINA
     Indication: Neuralgia
     Dosage: 200 UNITS, SINGLE
     Dates: start: 20210202, end: 20210202
  3. BOTOX [Suspect]
     Active Substance: ONABOTULINUMTOXINA
     Dosage: UNK, SINGLE
     Dates: start: 202101, end: 202101

REACTIONS (3)
  - COVID-19 [Unknown]
  - Off label use [Unknown]
  - Neck pain [Unknown]
